FAERS Safety Report 5313352-5 (Version None)
Quarter: 2007Q1

REPORT INFORMATION
  Report Type: 
  Country: None (occurrence: None)
  Receive Date: 20070201
  Receipt Date: 20061207
  Transmission Date: 20070707
  Serious: No
  Sender: FDA-Public Use
  Company Number: VNL_0337_2006

PATIENT
  Age: 70 Year
  Sex: Male
  Weight: 82.5547 kg

DRUGS (7)
  1. APOKYN [Suspect]
     Indication: PARKINSON'S DISEASE
     Dosage: VARIABLE SC
     Route: 058
     Dates: start: 20060901
  2. QUETIAPINE FUMARATE [Concomitant]
  3. CARBIDOPA [Concomitant]
  4. ENTACAPONE [Concomitant]
  5. LEVODOPA [Concomitant]
  6. METFORMIN HCL [Concomitant]
  7. DOXAZOSIN MESYLATE [Concomitant]

REACTIONS (1)
  - NAUSEA [None]
